FAERS Safety Report 25512311 (Version 1)
Quarter: 2025Q3

REPORT INFORMATION
  Report Type: Spontaneous
  Country: US (occurrence: US)
  Receive Date: 20250703
  Receipt Date: 20250703
  Transmission Date: 20251020
  Serious: No
  Sender: TEIKOKU
  Company Number: US-GRUNENTHAL-2025-107575

PATIENT
  Age: 62 Year
  Sex: Female
  Weight: 109 kg

DRUGS (6)
  1. LIDOCAINE [Suspect]
     Active Substance: LIDOCAINE
     Indication: Muscle spasms
     Route: 061
  2. LIDOCAINE [Suspect]
     Active Substance: LIDOCAINE
     Indication: Arthritis
  3. LIDOCAINE [Suspect]
     Active Substance: LIDOCAINE
     Indication: Fibromyalgia
  4. NAPROXEN [Concomitant]
     Active Substance: NAPROXEN
     Dosage: 500 MILLIGRAM, 1/DAY
  5. MORPHINE [Concomitant]
     Active Substance: MORPHINE
     Dosage: 2 DOSAGE FORM, 1/DAY
  6. TYLENOL [Concomitant]
     Active Substance: ACETAMINOPHEN
     Indication: Analgesic therapy

REACTIONS (1)
  - No adverse event [Unknown]
